FAERS Safety Report 18063513 (Version 2)
Quarter: 2020Q3

REPORT INFORMATION
  Report Type: Spontaneous
  Country: IN (occurrence: IN)
  Receive Date: 20200723
  Receipt Date: 20200728
  Transmission Date: 20201103
  Serious: Yes (Death)
  Sender: FDA-Public Use
  Company Number: IN-ABBVIE-20K-078-3488473-00

PATIENT
  Age: 28 Week
  Weight: 1.1 kg

DRUGS (1)
  1. SURVANTA [Suspect]
     Active Substance: BERACTANT
     Indication: RESPIRATORY DISTRESS
     Dosage: 3 X 4ML, 25 MG/ML, 3 DOSES OVER A PERIOD OF 96 HOURS
     Route: 039

REACTIONS (3)
  - Pneumonia [Fatal]
  - Sepsis [Fatal]
  - Drug ineffective [Fatal]

NARRATIVE: CASE EVENT DATE: 20200708
